FAERS Safety Report 14364243 (Version 15)
Quarter: 2018Q3

REPORT INFORMATION
  Report Type: Report from Study
  Country: IL (occurrence: IL)
  Receive Date: 20180108
  Receipt Date: 20180904
  Transmission Date: 20181010
  Serious: Yes (Hospitalization, Other)
  Sender: FDA-Public Use
  Company Number: PHHY2017IL187070

PATIENT
  Age: 71 Year
  Sex: Female
  Weight: 64.3 kg

DRUGS (4)
  1. AFINITOR [Suspect]
     Active Substance: EVEROLIMUS
     Dosage: 10 MG/5 MG ALTERNATING QD
     Route: 048
     Dates: start: 20180328
  2. AFINITOR [Suspect]
     Active Substance: EVEROLIMUS
     Dosage: 5 MG, QD
     Route: 048
     Dates: end: 2015
  3. AFINITOR [Suspect]
     Active Substance: EVEROLIMUS
     Indication: BREAST CANCER
     Dosage: 10 MG, QD
     Route: 048
     Dates: start: 20130501
  4. AFINITOR [Suspect]
     Active Substance: EVEROLIMUS
     Dosage: 10 MG/5 MG ALTERNATING QD
     Route: 048
     Dates: start: 2015

REACTIONS (38)
  - Second primary malignancy [Not Recovered/Not Resolved]
  - White blood cell count decreased [Recovering/Resolving]
  - Joint swelling [Not Recovered/Not Resolved]
  - Stomatitis [Recovered/Resolved]
  - Eructation [Not Recovered/Not Resolved]
  - Haemoglobin decreased [Recovering/Resolving]
  - Oedema peripheral [Not Recovered/Not Resolved]
  - Diaphragmatic hernia [Unknown]
  - Malignant neoplasm progression [Unknown]
  - Hot flush [Recovered/Resolved]
  - Blood creatinine increased [Not Recovered/Not Resolved]
  - Cough [Recovered/Resolved]
  - Blood albumin decreased [Unknown]
  - Nausea [Not Recovered/Not Resolved]
  - Musculoskeletal pain [Not Recovered/Not Resolved]
  - Glossodynia [Not Recovered/Not Resolved]
  - Productive cough [Recovered/Resolved]
  - Blood glucose increased [Unknown]
  - Vomiting [Recovered/Resolved]
  - Stomatitis [Recovered/Resolved]
  - Vomiting [Recovered/Resolved]
  - Diarrhoea [Recovered/Resolved]
  - Headache [Recovered/Resolved]
  - Breast cancer [Unknown]
  - Tumour marker increased [Unknown]
  - Carbohydrate antigen 125 increased [Not Recovered/Not Resolved]
  - Pyrexia [Recovered/Resolved]
  - Plasma cell myeloma [Not Recovered/Not Resolved]
  - Leukopenia [Recovering/Resolving]
  - Rhinorrhoea [Not Recovered/Not Resolved]
  - Blood lactate dehydrogenase increased [Not Recovered/Not Resolved]
  - Abdominal pain [Recovering/Resolving]
  - Oral pain [Recovered/Resolved]
  - Pneumonia [Unknown]
  - Blood potassium increased [Unknown]
  - Asthenia [Recovered/Resolved]
  - Nausea [Recovered/Resolved]
  - Weight decreased [Recovered/Resolved]

NARRATIVE: CASE EVENT DATE: 201609
